FAERS Safety Report 20834563 (Version 1)
Quarter: 2022Q2

REPORT INFORMATION
  Report Type: Spontaneous
  Country: US (occurrence: None)
  Receive Date: 20220513
  Receipt Date: 20220513
  Transmission Date: 20220721
  Serious: Yes (Death, Hospitalization)
  Sender: FDA-Public Use
  Company Number: None

PATIENT
  Age: 88 Year
  Sex: Male

DRUGS (1)
  1. PROMACTA [Suspect]
     Active Substance: ELTROMBOPAG OLAMINE
     Indication: Immune thrombocytopenia
     Dosage: FREQUENCY : DAILY;?
     Route: 048
     Dates: start: 20151106, end: 20220424

REACTIONS (5)
  - Craniocerebral injury [None]
  - Fall [None]
  - Subarachnoid haemorrhage [None]
  - Toxic encephalopathy [None]
  - Pneumonia aspiration [None]

NARRATIVE: CASE EVENT DATE: 20220511
